FAERS Safety Report 6696908-7 (Version None)
Quarter: 2010Q2

REPORT INFORMATION
  Report Type: 
  Country: None (occurrence: None)
  Receive Date: 20100426
  Receipt Date: 20100413
  Transmission Date: 20101027
  Serious: Yes (Hospitalization)
  Sender: FDA-Public Use
  Company Number: PHHY2010MX05245

PATIENT
  Age: 82 Year
  Sex: Female

DRUGS (2)
  1. DIOVAN HCT [Suspect]
     Indication: HYPERTENSION
     Dosage: 1 TABLET (320/12.5 MG) PER DAY
     Route: 048
     Dates: start: 20070201
  2. ANTIBIOTICS [Concomitant]

REACTIONS (7)
  - BLOOD PRESSURE INCREASED [None]
  - DECREASED APPETITE [None]
  - FACIAL BONES FRACTURE [None]
  - FALL [None]
  - PYREXIA [None]
  - TREMOR [None]
  - URINARY TRACT INFECTION [None]
